FAERS Safety Report 6104085-6 (Version None)
Quarter: 2009Q1

REPORT INFORMATION
  Report Type: 
  Country: None (occurrence: None)
  Receive Date: 20090227
  Receipt Date: 20090216
  Transmission Date: 20090719
  Serious: Yes (Other)
  Sender: FDA-Public Use
  Company Number: GXKR2009IT02018

PATIENT
  Age: 23 Year
  Sex: Male

DRUGS (3)
  1. MESALAMINE [Suspect]
     Indication: COLITIS ULCERATIVE
     Dosage: 2.4 G/DAY, ORAL
     Route: 048
     Dates: end: 20060401
  2. MESALAMINE [Suspect]
     Indication: COLITIS ULCERATIVE
     Dosage: 2.4 G/DAY, ORAL
     Route: 048
     Dates: start: 20060501
  3. ACETYLSALICYLIC ACID SRT [Suspect]
     Indication: INFLUENZA
     Dosage: 300 MG,
     Dates: start: 20061201

REACTIONS (11)
  - ARTHRALGIA [None]
  - COLITIS ULCERATIVE [None]
  - CROSS SENSITIVITY REACTION [None]
  - DISEASE RECURRENCE [None]
  - DRUG HYPERSENSITIVITY [None]
  - DRUG INEFFECTIVE [None]
  - DYSPNOEA EXERTIONAL [None]
  - MALABSORPTION [None]
  - PLEURAL EFFUSION [None]
  - PLEURISY [None]
  - PYREXIA [None]
